FAERS Safety Report 5367475-5 (Version None)
Quarter: 2007Q2

REPORT INFORMATION
  Report Type: 
  Country: None (occurrence: None)
  Receive Date: 20070622
  Receipt Date: 20061027
  Transmission Date: 20071010
  Serious: No
  Sender: FDA-Public Use
  Company Number: US-ASTRAZENECA-2006UW20655

PATIENT
  Age: 4 Year

DRUGS (2)
  1. PULMICORT RESPULES [Suspect]
     Indication: CROUP INFECTIOUS
     Route: 055
  2. ALBUTEROL [Concomitant]
     Indication: CROUP INFECTIOUS

REACTIONS (2)
  - HYPERSENSITIVITY [None]
  - RESPIRATORY DISTRESS [None]
